FAERS Safety Report 8426063-4 (Version None)
Quarter: 2012Q2

REPORT INFORMATION
  Report Type: 
  Country: None (occurrence: None)
  Receive Date: 20120611
  Receipt Date: 20120529
  Transmission Date: 20120825
  Serious: Yes (Hospitalization)
  Sender: FDA-Public Use
  Company Number: US-ELI_LILLY_AND_COMPANY-US201205010113

PATIENT
  Age: 89 Year
  Sex: Female

DRUGS (4)
  1. COREG [Concomitant]
  2. LASIX [Concomitant]
  3. CYMBALTA [Suspect]
     Indication: DEPRESSION
     Dosage: 20 MG, QD
     Dates: start: 20120524, end: 20120525
  4. POTASSIUM [Concomitant]

REACTIONS (6)
  - FAECAL INCONTINENCE [None]
  - URINARY INCONTINENCE [None]
  - SOMNOLENCE [None]
  - MYDRIASIS [None]
  - HALLUCINATION [None]
  - DEPRESSED LEVEL OF CONSCIOUSNESS [None]
